FAERS Safety Report 5136829-4 (Version None)
Quarter: 2006Q4

REPORT INFORMATION
  Report Type: 
  Country: None (occurrence: None)
  Receive Date: 20061023
  Receipt Date: 20061005
  Transmission Date: 20070319
  Serious: Yes (Other)
  Sender: FDA-Public Use
  Company Number: US018405

PATIENT
  Age: 58 Year
  Sex: Female

DRUGS (2)
  1. TRISENOX [Suspect]
     Indication: ACUTE PROMYELOCYTIC LEUKAEMIA
     Dosage: 6.66 MG QD INTRAVENOUS DRIP
     Route: 041
     Dates: start: 20060516, end: 20060619
  2. METHOTREXATE [Suspect]
     Indication: PROPHYLAXIS
     Dosage: 15 MG QD INTRATHECAL
     Route: 037
     Dates: start: 20060520, end: 20060520

REACTIONS (3)
  - ELECTROCARDIOGRAM QT PROLONGED [None]
  - HERPES ZOSTER [None]
  - WHITE BLOOD CELL COUNT DECREASED [None]
